FAERS Safety Report 14668067 (Version 1)
Quarter: 2018Q1

REPORT INFORMATION
  Report Type: Spontaneous
  Country: BR (occurrence: BR)
  Receive Date: 20180322
  Receipt Date: 20180322
  Transmission Date: 20180509
  Serious: Yes (Other)
  Sender: FDA-Public Use
  Company Number: BR-TORRENT-00004325

PATIENT
  Age: 45 Year
  Sex: Male
  Weight: 122 kg

DRUGS (6)
  1. OLMECOR [Suspect]
     Active Substance: OLMESARTAN MEDOXOMIL
     Indication: HYPERTENSION
     Dosage: ONE TABLET DAILY
     Route: 048
     Dates: start: 20170619
  2. CEPHALEXIN. [Concomitant]
     Active Substance: CEPHALEXIN
     Indication: HAEMORRHOIDS
     Dosage: 4 TABLETS DAILY
     Dates: start: 201702
  3. ROSUCOR [Suspect]
     Active Substance: ROSUVASTATIN CALCIUM
     Indication: HYPERTENSION
     Dosage: ONE TABLET DAILY
     Route: 048
     Dates: start: 201707
  4. FLAVONID [Concomitant]
     Indication: HAEMORRHOIDS
     Dosage: 450/50 MG ONE TABLET IN THE MORNING AND ONE TABLET AT NIGHT
     Dates: start: 201702
  5. ALDACTONE [Concomitant]
     Active Substance: SPIRONOLACTONE
     Indication: HYPERTENSION
     Dosage: UNSPECIFIED
     Dates: start: 20170725
  6. ROXFLAN [Concomitant]
     Active Substance: AMLODIPINE BESYLATE
     Indication: HYPERTENSION
     Dosage: 5 MG ONE TABLET DAILY
     Dates: start: 20170725

REACTIONS (4)
  - Off label use [Unknown]
  - Blood glucose increased [Not Recovered/Not Resolved]
  - Drug ineffective [Unknown]
  - Haemorrhoids [Not Recovered/Not Resolved]

NARRATIVE: CASE EVENT DATE: 201707
